FAERS Safety Report 23046593 (Version 2)
Quarter: 2023Q4

REPORT INFORMATION
  Report Type: Report from Study
  Country: CA (occurrence: None)
  Receive Date: 20231009
  Receipt Date: 20231017
  Transmission Date: 20240110
  Serious: Yes (Death, Other)
  Sender: FDA-Public Use
  Company Number: 2023A228311

PATIENT
  Sex: Male

DRUGS (1)
  1. IMFINZI [Suspect]
     Active Substance: DURVALUMAB
     Indication: Cholangiocarcinoma
     Route: 042
     Dates: start: 20230331, end: 20231005

REACTIONS (4)
  - Shock haemorrhagic [Fatal]
  - Portal vein thrombosis [Fatal]
  - Cholangiocarcinoma [Fatal]
  - Metastases to lung [Fatal]
